FAERS Safety Report 23302898 (Version 2)
Quarter: 2023Q4

REPORT INFORMATION
  Report Type: Spontaneous
  Country: US (occurrence: US)
  Receive Date: 20231215
  Receipt Date: 20231219
  Transmission Date: 20240109
  Serious: Yes (Hospitalization, Other)
  Sender: FDA-Public Use
  Company Number: US-BRISTOL-MYERS SQUIBB COMPANY-2023-179759

PATIENT
  Age: 10 Year
  Sex: Male

DRUGS (2)
  1. THALOMID [Suspect]
     Active Substance: THALIDOMIDE
     Indication: Brain neoplasm malignant
     Dosage: FREQ: 28
     Dates: start: 20231004
  2. THALOMID [Suspect]
     Active Substance: THALIDOMIDE
     Dosage: FREQ: 28
     Route: 048
     Dates: start: 202311

REACTIONS (2)
  - Medulloblastoma [Unknown]
  - Off label use [Unknown]
